FAERS Safety Report 4862433-9 (Version None)
Quarter: 2005Q4

REPORT INFORMATION
  Report Type: 
  Country: None (occurrence: None)
  Receive Date: 20051221
  Receipt Date: 20051209
  Transmission Date: 20060501
  Serious: Yes (Other)
  Sender: FDA-Public Use
  Company Number: CA-BRISTOL-MYERS SQUIBB COMPANY-13219878

PATIENT
  Age: 79 Year
  Sex: Female

DRUGS (7)
  1. TEQUIN [Suspect]
     Route: 048
  2. BISOPROLOL [Concomitant]
  3. FUROSEMIDE [Concomitant]
  4. GLYBURIDE [Concomitant]
  5. NOZINAN [Concomitant]
  6. OMEPRAZOLE [Concomitant]
  7. SPIRONOLACTONE [Concomitant]

REACTIONS (3)
  - BLOOD CREATININE INCREASED [None]
  - HYPOGLYCAEMIA [None]
  - RENAL FUNCTION TEST ABNORMAL [None]
